FAERS Safety Report 4518885-7 (Version None)
Quarter: 2004Q4

REPORT INFORMATION
  Report Type: 
  Country: None (occurrence: None)
  Receive Date: 20041206
  Receipt Date: 20041126
  Transmission Date: 20050328
  Serious: Yes (Life-Threatening)
  Sender: FDA-Public Use
  Company Number: 200421694GDDC

PATIENT
  Age: 67 Year
  Sex: Male
  Weight: 93.6 kg

DRUGS (11)
  1. LEFLUNOMIDE [Suspect]
     Indication: RHEUMATOID ARTHRITIS
     Route: 048
     Dates: start: 20040823, end: 20041018
  2. METHOTREXATE [Concomitant]
     Indication: RHEUMATOID ARTHRITIS
     Dates: start: 20030507, end: 20041018
  3. TRAMADOL [Concomitant]
     Indication: RHEUMATOID ARTHRITIS
     Dates: start: 20021216
  4. PARACETAMOL [Concomitant]
     Indication: RHEUMATOID ARTHRITIS
     Dates: start: 20021216
  5. FOLIC ACID [Concomitant]
     Indication: RHEUMATOID ARTHRITIS
     Dates: start: 20030507, end: 20041018
  6. RABEPRAZOLE SODIUM [Concomitant]
     Indication: GASTRITIS
     Dates: start: 20021216
  7. PRAVASTATIN [Concomitant]
     Indication: BLOOD CHOLESTEROL INCREASED
     Dates: start: 20021216
  8. DOXAZOSIN [Concomitant]
     Indication: HYPERTENSION
     Dates: start: 20021216
  9. TELMISARTAN [Concomitant]
     Indication: HYPERTENSION
     Dates: start: 20021216
  10. FENTANYL [Concomitant]
     Indication: PAIN
     Dates: start: 20021216, end: 20040315
  11. DICLOMAX [Concomitant]
     Indication: RHEUMATOID ARTHRITIS

REACTIONS (2)
  - RENAL VASCULITIS [None]
  - SKIN LESION [None]
